FAERS Safety Report 6585204-4 (Version None)
Quarter: 2010Q1

REPORT INFORMATION
  Report Type: 
  Country: None (occurrence: None)
  Receive Date: 20100217
  Receipt Date: 20100209
  Transmission Date: 20100710
  Serious: No
  Sender: FDA-Public Use
  Company Number: US-B.I. PHARMACEUTICALS,INC./RIDGEFIELD-2010-BP-01740PF

PATIENT
  Age: 54 Year
  Sex: Female

DRUGS (10)
  1. SPIRIVA [Suspect]
     Indication: CHRONIC OBSTRUCTIVE PULMONARY DISEASE
     Dosage: 18 MCG
     Route: 055
     Dates: start: 20070101
  2. SPIRIVA [Suspect]
     Indication: EMPHYSEMA
  3. ADVAIR DISKUS 100/50 [Concomitant]
     Indication: CHRONIC OBSTRUCTIVE PULMONARY DISEASE
  4. SINGULAIR [Concomitant]
     Indication: CHRONIC OBSTRUCTIVE PULMONARY DISEASE
  5. THYROID PILL [Concomitant]
     Indication: HYPOTHYROIDISM
  6. KLONEPIN [Concomitant]
     Indication: RESTLESS LEGS SYNDROME
  7. BP MEDS [Concomitant]
     Indication: HYPERTENSION
  8. CHOLESTEROL MED [Concomitant]
     Indication: BLOOD CHOLESTEROL INCREASED
  9. DEPRESSION MEDS [Concomitant]
     Indication: DEPRESSION
  10. ANXIETY MEDS [Concomitant]
     Indication: ANXIETY

REACTIONS (2)
  - ABNORMAL DREAMS [None]
  - DYSPNOEA [None]
